FAERS Safety Report 7450835-6 (Version None)
Quarter: 2011Q2

REPORT INFORMATION
  Report Type: 
  Country: None (occurrence: None)
  Receive Date: 20110428
  Receipt Date: 20110428
  Transmission Date: 20111010
  Serious: No
  Sender: FDA-Public Use
  Company Number: None

PATIENT
  Age: 63 Year
  Sex: Female

DRUGS (5)
  1. PREMARIN [Suspect]
  2. PREMARIN [Suspect]
  3. PREMARIN [Suspect]
  4. PREMARIN [Suspect]
  5. PREMARIN [Suspect]

REACTIONS (4)
  - DRUG INEFFECTIVE [None]
  - ADNEXA UTERI PAIN [None]
  - PRODUCT QUALITY ISSUE [None]
  - GASTROINTESTINAL PAIN [None]
